APPROVED DRUG PRODUCT: FLUPHENAZINE HYDROCHLORIDE
Active Ingredient: FLUPHENAZINE HYDROCHLORIDE
Strength: 2.5MG
Dosage Form/Route: TABLET;ORAL
Application: A215674 | Product #002 | TE Code: AB
Applicant: TARO PHARMACEUTICAL INDUSTRIES LTD
Approved: Apr 14, 2022 | RLD: No | RS: No | Type: RX